FAERS Safety Report 4457629-4 (Version None)
Quarter: 2004Q3

REPORT INFORMATION
  Report Type: 
  Country: None (occurrence: None)
  Receive Date: 20040922
  Receipt Date: 20040908
  Transmission Date: 20050211
  Serious: Yes (Death)
  Sender: FDA-Public Use
  Company Number: 2004S1002692

PATIENT
  Age: 56 Year
  Sex: Female

DRUGS (20)
  1. CLOZAPINE [Suspect]
     Indication: SCHIZOAFFECTIVE DISORDER
     Dosage: 200MG Q AM AND 400 MG Q H, ORAL
     Route: 048
     Dates: start: 20030201
  2. ZOLPIDEM TARTRATE [Concomitant]
  3. ALBUTEROL SULFATE [Concomitant]
  4. METHYLPREDNISOLONE [Concomitant]
  5. CALCIUM WITH VITAMIN D [Concomitant]
  6. VITAMIN E [Concomitant]
  7. RANITIDINE [Concomitant]
  8. METFORMIN [Concomitant]
  9. ARIPIPRAZOLE [Concomitant]
  10. CARVEDILOL [Concomitant]
  11. PAROXETINE HCL [Concomitant]
  12. CLOPIDOGREL [Concomitant]
  13. MECLIZINE (PRN) [Concomitant]
  14. EZETIMIB [Concomitant]
  15. SIMVASTATIN [Concomitant]
  16. METOCLOPRAMIDE [Concomitant]
  17. OXYBUTYNIN [Concomitant]
  18. PANTOPRAZOLE [Concomitant]
  19. DOCUSATE SODUM [Concomitant]
  20. LOSARTAN/HCTZ [Concomitant]

REACTIONS (1)
  - DYSPNOEA [None]
